FAERS Safety Report 7603960 (Version 2)
Quarter: 2012Q4

REPORT INFORMATION
  Report Type: 
  Country: GB (occurrence: US)
  Receive Date: 20100923
  Receipt Date: 20121128
  Transmission Date: 20130627
  Serious: Yes (Death, Hospitalization)
  Sender: FDA-Public Use
  Company Number: US-MILLENNIUM PHARMACEUTICALS, INC.-2010-04907

PATIENT
  Age: 76 Year
  Sex: Female
  Weight: 67 kg

DRUGS (15)
  1. VELCADE [Suspect]
     Indication: MANTLE CELL LYMPHOMA
     Dosage: 2.25 mg, Cyclic
     Route: 040
     Dates: start: 20100827
  2. RITUXIMAB [Suspect]
     Indication: MANTLE CELL LYMPHOMA
     Dosage: 649 mg, Cyclic
     Route: 042
     Dates: start: 20100826, end: 20100826
  3. CYCLOPHOSPHAMIDE [Suspect]
     Indication: MANTLE CELL LYMPHOMA
     Dosage: 519 mg, Cyclic
     Route: 042
     Dates: start: 20100827
  4. VINCRISTINE [Suspect]
     Indication: MANTLE CELL LYMPHOMA
     Dosage: 2 mg, Cyclic
     Route: 042
     Dates: start: 20100830
  5. DOXORUBICIN [Suspect]
     Indication: MANTLE CELL LYMPHOMA
     Dosage: 86.5 mg, Cyclic
     Route: 042
     Dates: start: 20100830
  6. METHOTREXATE [Suspect]
     Indication: MANTLE CELL LYMPHOMA
  7. CYTARABINE [Suspect]
     Indication: MANTLE CELL LYMPHOMA
  8. DEXAMETHASONE [Suspect]
     Indication: MANTLE CELL LYMPHOMA
     Dosage: 40 mg, Cyclic
     Dates: start: 20100827
  9. FILGRASTIM [Concomitant]
     Indication: PRODUCT USED FOR UNKNOWN INDICATION
     Dosage: UNK
     Route: 058
     Dates: start: 20100830
  10. GABAPENTIN [Concomitant]
     Indication: PRODUCT USED FOR UNKNOWN INDICATION
     Dosage: UNK
     Route: 048
     Dates: start: 20100909
  11. MESNA [Concomitant]
     Indication: PRODUCT USED FOR UNKNOWN INDICATION
     Dosage: UNK
     Route: 042
     Dates: start: 20100827
  12. ONDANSETRON [Concomitant]
     Indication: PRODUCT USED FOR UNKNOWN INDICATION
     Dosage: 8 mg, prn
     Route: 042
     Dates: start: 20090909
  13. VALACICLOVIR HYDROCHLORIDE [Concomitant]
     Indication: PRODUCT USED FOR UNKNOWN INDICATION
     Dosage: UNK
     Route: 042
     Dates: start: 20100830
  14. CYMBALTA [Concomitant]
     Indication: PRODUCT USED FOR UNKNOWN INDICATION
     Route: 048
  15. VYTORIN [Concomitant]
     Indication: PRODUCT USED FOR UNKNOWN INDICATION

REACTIONS (12)
  - Death [Fatal]
  - Respiratory failure [Fatal]
  - Sepsis [Fatal]
  - Renal failure [Fatal]
  - Staphylococcal infection [None]
  - Septic shock [None]
  - Lactic acidosis [None]
  - Hypoperfusion [None]
  - Hypocalcaemia [None]
  - Dehydration [None]
  - Hyponatraemia [None]
  - Mental status changes [None]
